FAERS Safety Report 16698834 (Version 1)
Quarter: 2019Q3

REPORT INFORMATION
  Report Type: Spontaneous
  Country: FR (occurrence: FR)
  Receive Date: 20190813
  Receipt Date: 20190813
  Transmission Date: 20191004
  Serious: Yes (Life-Threatening)
  Sender: FDA-Public Use
  Company Number: FR-MYLANLABS-2019M1075126

PATIENT
  Age: 10 Year
  Sex: Male
  Weight: 29.5 kg

DRUGS (12)
  1. NALBUPHINE MYLAN [Suspect]
     Active Substance: NALBUPHINE
     Indication: ANAESTHESIA
     Dosage: 6 MILLIGRAM, TOTAL
     Route: 042
     Dates: start: 20190131, end: 20190131
  2. AERIUS (DESLORATADINE) [Concomitant]
     Active Substance: DESLORATADINE
     Dosage: UNK
  3. PARACETAMOL [Suspect]
     Active Substance: ACETAMINOPHEN
     Indication: PAIN PROPHYLAXIS
     Dosage: UNK
     Route: 042
     Dates: start: 20190130, end: 20190131
  4. NIMBEX [Suspect]
     Active Substance: CISATRACURIUM BESYLATE
     Indication: ANAESTHESIA
     Dosage: 3 MILLIGRAM, TOTAL
     Route: 042
     Dates: start: 20190131, end: 20190131
  5. SINGULAIR [Concomitant]
     Active Substance: MONTELUKAST SODIUM
     Dosage: UNK
  6. MORPHINE [Suspect]
     Active Substance: MORPHINE
     Indication: PAIN PROPHYLAXIS
     Dosage: UNK
     Route: 042
     Dates: start: 20190131, end: 20190131
  7. AUGMENTIN [Suspect]
     Active Substance: AMOXICILLIN\CLAVULANATE POTASSIUM
     Indication: ANTIBIOTIC PROPHYLAXIS
     Dosage: 2250 MILLIGRAM, QD
     Route: 042
     Dates: start: 20190130, end: 20190131
  8. QVAR [Concomitant]
     Active Substance: BECLOMETHASONE DIPROPIONATE
     Dosage: UNK
  9. SUFENTANIL MYLAN [Suspect]
     Active Substance: SUFENTANIL
     Indication: GENERAL ANAESTHESIA
     Dosage: 17.5 MICROGRAM, TOTAL
     Route: 042
     Dates: start: 20190131, end: 20190131
  10. DIPRIVAN [Suspect]
     Active Substance: PROPOFOL
     Indication: ANAESTHESIA
     Dosage: 150 MILLIGRAM, TOTAL
     Route: 042
     Dates: start: 20190131, end: 20190131
  11. AIROMIR                            /00139501/ [Concomitant]
     Active Substance: ALBUTEROL
     Dosage: UNK
  12. SOLUPRED                           /00016217/ [Concomitant]
     Active Substance: PREDNISOLONE SODIUM METAZOATE
     Dosage: UNK

REACTIONS (3)
  - Urticaria [Recovered/Resolved]
  - Angioedema [Recovered/Resolved]
  - Oxygen saturation decreased [Recovered/Resolved]

NARRATIVE: CASE EVENT DATE: 20190131
